FAERS Safety Report 5151584-X (Version None)
Quarter: 2006Q4

REPORT INFORMATION
  Report Type: 
  Country: None (occurrence: None)
  Receive Date: 20061115
  Receipt Date: 20050907
  Transmission Date: 20070319
  Serious: No
  Sender: FDA-Public Use
  Company Number: US-BRISTOL-MYERS SQUIBB COMPANY-13102694

PATIENT
  Age: 42 Year
  Sex: Male
  Weight: 60 kg

DRUGS (4)
  1. SUSTIVA [Suspect]
     Indication: HIV INFECTION
  2. TRUVADA [Concomitant]
  3. MULTI-VITAMIN [Concomitant]
  4. XANAX [Concomitant]
     Dates: start: 20050831

REACTIONS (1)
  - BREAST MASS [None]
